FAERS Safety Report 17533314 (Version 1)
Quarter: 2020Q1

REPORT INFORMATION
  Report Type: Report from Study
  Country: US (occurrence: US)
  Receive Date: 20200312
  Receipt Date: 20200312
  Transmission Date: 20200409
  Serious: Yes (Other)
  Sender: FDA-Public Use
  Company Number: US-PFIZER INC-2019425922

PATIENT
  Age: 60 Year
  Sex: Female

DRUGS (4)
  1. IBRANCE [Suspect]
     Active Substance: PALBOCICLIB
     Dosage: 100 MG, CYCLIC (21 DAYS ON, AND OFF 7 DAYS)
     Route: 048
     Dates: start: 20191015
  2. LETROZOLE. [Concomitant]
     Active Substance: LETROZOLE
     Dosage: UNK, DAILY
  3. XGEVA [Concomitant]
     Active Substance: DENOSUMAB
  4. IBRANCE [Suspect]
     Active Substance: PALBOCICLIB
     Indication: BREAST CANCER FEMALE
     Dosage: 125 MG, CYCLIC (21 DAYS ON, AND OFF 7 DAYS)
     Route: 048
     Dates: start: 20190906, end: 20191005

REACTIONS (14)
  - Mental impairment [Unknown]
  - Abdominal pain [Unknown]
  - Alopecia [Unknown]
  - Blood calcium decreased [Unknown]
  - Haemoglobin decreased [Recovering/Resolving]
  - Abdominal pain upper [Recovering/Resolving]
  - Nausea [Recovered/Resolved]
  - Fatigue [Unknown]
  - Insomnia [Unknown]
  - Platelet count abnormal [Recovering/Resolving]
  - White blood cell count abnormal [Recovering/Resolving]
  - Diarrhoea [Recovered/Resolved]
  - Vomiting [Recovered/Resolved]
  - Feeling abnormal [Unknown]

NARRATIVE: CASE EVENT DATE: 201909
